FAERS Safety Report 13639802 (Version 1)
Quarter: 2017Q2

REPORT INFORMATION
  Report Type: Spontaneous
  Country: US (occurrence: US)
  Receive Date: 20170609
  Receipt Date: 20170609
  Transmission Date: 20170830
  Serious: No
  Sender: FDA-Public Use
  Company Number: US-ROCHE-1051084

PATIENT
  Sex: Female

DRUGS (5)
  1. KLONOPIN [Suspect]
     Active Substance: CLONAZEPAM
     Dosage: HALF TABLET PER DAY SINCE APRIL/2012
     Route: 048
  2. KLONOPIN [Suspect]
     Active Substance: CLONAZEPAM
     Route: 048
  3. KLONOPIN [Suspect]
     Active Substance: CLONAZEPAM
     Indication: PANIC ATTACK
     Route: 048
     Dates: start: 2000
  4. KLONOPIN [Suspect]
     Active Substance: CLONAZEPAM
     Route: 048
  5. KLONOPIN [Suspect]
     Active Substance: CLONAZEPAM
     Indication: HEART RATE INCREASED
     Route: 048

REACTIONS (11)
  - Memory impairment [Unknown]
  - Arrhythmia [Unknown]
  - Myalgia [Unknown]
  - Back disorder [Unknown]
  - Dizziness [Unknown]
  - Insomnia [Unknown]
  - Dry mouth [Unknown]
  - Urinary tract disorder [Unknown]
  - Vision blurred [Unknown]
  - Product colour issue [Unknown]
  - Amnesia [Unknown]
